FAERS Safety Report 8522694-1 (Version None)
Quarter: 2012Q3

REPORT INFORMATION
  Report Type: 
  Country: None (occurrence: None)
  Receive Date: 20120719
  Receipt Date: 20120716
  Transmission Date: 20120928
  Serious: Yes (Other)
  Sender: FDA-Public Use
  Company Number: US-GLAXOSMITHKLINE-A0984596A

PATIENT
  Age: 61 Year
  Sex: Female

DRUGS (8)
  1. EVISTA [Concomitant]
     Indication: OSTEOPOROSIS PROPHYLAXIS
  2. PREVACID [Concomitant]
  3. CELEXA [Concomitant]
  4. MULTI-VITAMIN [Concomitant]
  5. SINGULAIR [Concomitant]
  6. CALCIUM [Concomitant]
  7. ADVAIR DISKUS 100/50 [Suspect]
     Indication: ASTHMA
     Dosage: 1PUFF TWICE PER DAY
     Route: 055
     Dates: start: 20041101
  8. PIROXICAM [Concomitant]

REACTIONS (2)
  - ASTHMA [None]
  - PRODUCT QUALITY ISSUE [None]
